FAERS Safety Report 23596765 (Version 1)
Quarter: 2024Q1

REPORT INFORMATION
  Report Type: Spontaneous
  Country: GB (occurrence: GB)
  Receive Date: 20240305
  Receipt Date: 20240305
  Transmission Date: 20240409
  Serious: Yes (Disabling, Other)
  Sender: FDA-Public Use
  Company Number: None

PATIENT
  Age: 56 Year
  Sex: Male
  Weight: 108 kg

DRUGS (1)
  1. OXALIPLATIN [Suspect]
     Active Substance: OXALIPLATIN
     Indication: Neoplasm malignant
     Dates: start: 20240102, end: 20240102

REACTIONS (7)
  - Medication error [Unknown]
  - Heart rate irregular [Not Recovered/Not Resolved]
  - Amaurosis fugax [Recovering/Resolving]
  - Eye irritation [Unknown]
  - Vitreous floaters [Unknown]
  - Stress [Unknown]
  - Anxiety [Unknown]

NARRATIVE: CASE EVENT DATE: 20240102
